FAERS Safety Report 6936989-6 (Version None)
Quarter: 2010Q3

REPORT INFORMATION
  Report Type: 
  Country: None (occurrence: None)
  Receive Date: 20100823
  Receipt Date: 20100809
  Transmission Date: 20110219
  Serious: Yes (Disabling, Other)
  Sender: FDA-Public Use
  Company Number: PHBS2006NZ17836

PATIENT
  Sex: Female

DRUGS (11)
  1. ZOMETA [Suspect]
     Dosage: UNK
     Dates: start: 20040901
  2. THALIDOMIDE [Concomitant]
     Indication: LIGHT CHAIN ANALYSIS
     Dosage: 100 MG, DAILY
  3. DEXAMETHASONE [Concomitant]
     Indication: LIGHT CHAIN ANALYSIS
     Dosage: 40 MG, QW
     Dates: start: 20090901
  4. ACYCLOVIR [Concomitant]
     Dosage: 40 MG, BID
  5. COTRIM [Concomitant]
     Dosage: 960 MG, BID THREE DAYS A WEEK
  6. ASPIRIN [Concomitant]
     Dosage: UNK
  7. ANESTHETICS, GENERAL [Concomitant]
     Dosage: UNK
  8. NAROPIN [Concomitant]
     Dosage: UNK
  9. PROPOFOL [Concomitant]
     Dosage: UNK
  10. LOCAL ANAESTHETICS [Concomitant]
     Dosage: UNK
  11. ZINC OXIDE [Concomitant]
     Dosage: UNK

REACTIONS (27)
  - BONE DISORDER [None]
  - CELLULITIS [None]
  - DEBRIDEMENT [None]
  - DENTAL CARIES [None]
  - DENTAL PLAQUE [None]
  - GINGIVAL INFECTION [None]
  - GINGIVAL SWELLING [None]
  - GINGIVITIS [None]
  - HYPOAESTHESIA ORAL [None]
  - IMPAIRED HEALING [None]
  - LIGAMENT DISORDER [None]
  - LOOSE TOOTH [None]
  - OPEN WOUND [None]
  - ORAL MUCOSAL ERYTHEMA [None]
  - ORAL SURGERY [None]
  - OSTEOMYELITIS [None]
  - OSTEONECROSIS OF JAW [None]
  - PAIN [None]
  - PAIN IN JAW [None]
  - PLASMACYTOMA [None]
  - PURULENT DISCHARGE [None]
  - SINUSITIS [None]
  - TOOTH DISCOLOURATION [None]
  - TOOTH EXTRACTION [None]
  - TOOTH INFECTION [None]
  - TOOTHACHE [None]
  - WOUND TREATMENT [None]
